FAERS Safety Report 24068863 (Version 1)
Quarter: 2024Q3

REPORT INFORMATION
  Report Type: Report from Study
  Country: US (occurrence: US)
  Receive Date: 20240710
  Receipt Date: 20240710
  Transmission Date: 20241017
  Serious: No
  Sender: ROCHE
  Company Number: US-ROCHE-3511077

PATIENT
  Age: 83 Year
  Sex: Male

DRUGS (9)
  1. VABYSMO [Suspect]
     Active Substance: FARICIMAB\FARICIMAB-SVOA
     Indication: Neovascular age-related macular degeneration
     Dosage: 6 WEEKS AND 8 WEEKS
     Route: 065
  2. VABYSMO [Suspect]
     Active Substance: FARICIMAB\FARICIMAB-SVOA
     Indication: Choroidal neovascularisation
  3. ALPHA LIPOIC ACID [Concomitant]
     Active Substance: .ALPHA.-LIPOIC ACID
     Dosage: 50 MG CAPSULE
  4. AMLODIPINE [Concomitant]
     Active Substance: AMLODIPINE BESYLATE
     Dosage: 5 MG TABLET
  5. B COMPLEX WITH FOLIC ACID [Concomitant]
     Dosage: 1-100-300-50 MG-MG-MG-MG TABLET
  6. BREO ELLIPTA [Concomitant]
     Active Substance: FLUTICASONE FUROATE\VILANTEROL TRIFENATATE
     Dosage: 200-25 MCG/DOSE
  7. FISH OIL [Concomitant]
     Active Substance: FISH OIL
     Dosage: 300-500 MG CAPSULE
  8. PREDNISONE [Concomitant]
     Active Substance: PREDNISONE
     Dosage: 5 MG TABLET
  9. TAMSULOSIN [Concomitant]
     Active Substance: TAMSULOSIN
     Dosage: 0.4 MG CAPSULE

REACTIONS (2)
  - Off label use [Unknown]
  - No adverse event [Unknown]
